FAERS Safety Report 8874020 (Version 1)
Quarter: 2012Q4

REPORT INFORMATION
  Report Type: 
  Country: CO (occurrence: CO)
  Receive Date: 20121023
  Receipt Date: 20121023
  Transmission Date: 20130627
  Serious: Yes (Other)
  Sender: FDA-Public Use
  Company Number: CO-PFIZER INC-2012121283

PATIENT
  Age: 13 Year
  Sex: Male

DRUGS (1)
  1. GENOTROPIN [Suspect]
     Indication: BODY HEIGHT BELOW NORMAL
     Dosage: 1.9 mg, 1x/day
     Route: 058
     Dates: start: 20080901, end: 2012

REACTIONS (2)
  - Overweight [Not Recovered/Not Resolved]
  - Drug administration error [Unknown]
